FAERS Safety Report 4289705-3 (Version None)
Quarter: 2004Q1

REPORT INFORMATION
  Report Type: 
  Country: None (occurrence: None)
  Receive Date: 20040123
  Receipt Date: 20031105
  Transmission Date: 20041129
  Serious: Yes (Hospitalization)
  Sender: FDA-Public Use
  Company Number: LOV-US-03-00158

PATIENT
  Age: 79 Year
  Sex: Female
  Weight: 72.5755 kg

DRUGS (7)
  1. ALTOCOR [Suspect]
     Dosage: 40 MG  PO
     Route: 048
     Dates: start: 20030810, end: 20030901
  2. NEXIUM [Concomitant]
  3. TOPOROL XL (METOPROLOL) [Concomitant]
  4. GLUCOTROL [Concomitant]
  5. SYNTHROID [Concomitant]
  6. FUROSEMIDE [Concomitant]
  7. NPH INSULIN [Concomitant]

REACTIONS (1)
  - RHABDOMYOLYSIS [None]
